FAERS Safety Report 21680395 (Version 1)
Quarter: 2022Q4

REPORT INFORMATION
  Report Type: Report from Study
  Country: US (occurrence: US)
  Receive Date: 20221205
  Receipt Date: 20221205
  Transmission Date: 20230113
  Serious: No
  Sender: FDA-Public Use
  Company Number: US-ABBVIE-4173866

PATIENT
  Sex: Female

DRUGS (3)
  1. HUMIRA [Suspect]
     Active Substance: ADALIMUMAB
     Indication: Rheumatoid arthritis
     Route: 058
  2. JANSSEN COVID-19 VACCINE [Concomitant]
     Active Substance: AD26.COV2.S
     Indication: COVID-19 immunisation
     Dosage: 1ST DOSE, 1 IN ONCE
     Route: 030
     Dates: start: 20210701, end: 20210701
  3. Pfizer  BioNTech COVID-19 vaccine [Concomitant]
     Indication: COVID-19 immunisation
     Dosage: 3RD DOSE, 1 IN ONCE
     Route: 030
     Dates: start: 20220220, end: 20220220

REACTIONS (1)
  - Drug ineffective [Unknown]
